FAERS Safety Report 21464325 (Version 2)
Quarter: 2023Q1

REPORT INFORMATION
  Report Type: Spontaneous
  Country: US (occurrence: US)
  Receive Date: 20221017
  Receipt Date: 20230215
  Transmission Date: 20230418
  Serious: No
  Sender: FDA-Public Use
  Company Number: US-GSK-US2022146677

PATIENT
  Sex: Female

DRUGS (2)
  1. TRELEGY ELLIPTA [Suspect]
     Active Substance: FLUTICASONE FUROATE\UMECLIDINIUM BROMIDE\VILANTEROL TRIFENATATE
     Indication: Asthma-chronic obstructive pulmonary disease overlap syndrome
     Dosage: 1 PUFF(S), QD, 200-62.5-25MCG
     Route: 055
  2. ALBUTEROL [Suspect]
     Active Substance: ALBUTEROL
     Indication: Asthma-chronic obstructive pulmonary disease overlap syndrome
     Dosage: UNK UNK, QD (1-2 PUFFS AS NEEDED)

REACTIONS (2)
  - Dyspnoea [Not Recovered/Not Resolved]
  - Product use issue [Unknown]

NARRATIVE: CASE EVENT DATE: 20220101
